FAERS Safety Report 7397199-4 (Version None)
Quarter: 2011Q2

REPORT INFORMATION
  Report Type: 
  Country: None (occurrence: None)
  Receive Date: 20110406
  Receipt Date: 20110314
  Transmission Date: 20111010
  Serious: Yes (Hospitalization)
  Sender: FDA-Public Use
  Company Number: US-BAYER-2010-008653

PATIENT
  Sex: Female
  Weight: 53 kg

DRUGS (7)
  1. YASMIN [Suspect]
     Indication: ACNE
  2. YASMIN [Suspect]
     Indication: CONTRACEPTION
  3. CIPRO [Concomitant]
     Indication: URINARY TRACT INFECTION
     Dosage: UNK
     Dates: start: 20100509
  4. MOTRIN [Concomitant]
     Indication: BACK PAIN
     Dosage: UNK
  5. TRAMADOL [Concomitant]
     Indication: BACK PAIN
     Dosage: 100 MG, QD
  6. ADVIL LIQUI-GELS [Concomitant]
     Indication: BACK PAIN
     Dosage: UNK
  7. TRADOL [Concomitant]
     Indication: URINARY TRACT INFECTION
     Dosage: UNK
     Dates: start: 20100509

REACTIONS (4)
  - PULMONARY EMBOLISM [None]
  - DEEP VEIN THROMBOSIS [None]
  - PAIN IN EXTREMITY [None]
  - ANXIETY [None]
